FAERS Safety Report 9838890 (Version 1)
Quarter: 2014Q1

REPORT INFORMATION
  Report Type: Spontaneous
  Country: DE (occurrence: DE)
  Receive Date: 20140123
  Receipt Date: 20140123
  Transmission Date: 20141002
  Serious: Yes (Congenital Anomaly)
  Sender: FDA-Public Use
  Company Number: DE-TEVA-457368GER

PATIENT
  Age: 0 Year
  Sex: 0

DRUGS (2)
  1. VENLAFAXINE [Suspect]
     Route: 064
  2. FEMIBION [Concomitant]
     Route: 064

REACTIONS (3)
  - Atrioventricular septal defect [Not Recovered/Not Resolved]
  - Hydrops foetalis [Not Recovered/Not Resolved]
  - Microcephaly [Not Recovered/Not Resolved]
